FAERS Safety Report 12898336 (Version 1)
Quarter: 2016Q4

REPORT INFORMATION
  Report Type: Report from Study
  Country: None (occurrence: DE)
  Receive Date: 20161031
  Receipt Date: 20161031
  Transmission Date: 20170207
  Serious: Yes (Other)
  Sender: FDA-Public Use
  Company Number: DE-ABBVIE-16P-062-1766140-00

PATIENT
  Age: 28 Year
  Sex: Female

DRUGS (2)
  1. CEFURAX [Suspect]
     Active Substance: CEFUROXIME AXETIL
     Indication: PRODUCT USED FOR UNKNOWN INDICATION
     Route: 065
  2. HUMIRA [Suspect]
     Active Substance: ADALIMUMAB
     Indication: CROHN^S DISEASE
     Route: 058
     Dates: start: 20151214

REACTIONS (5)
  - Diarrhoea [Recovering/Resolving]
  - Lymph node abscess [Recovering/Resolving]
  - Chills [Recovering/Resolving]
  - Pyrexia [Recovering/Resolving]
  - Axillary pain [Recovering/Resolving]

NARRATIVE: CASE EVENT DATE: 20161016
